FAERS Safety Report 10154453 (Version 1)
Quarter: 2014Q2

REPORT INFORMATION
  Report Type: Spontaneous
  Country: DE (occurrence: DE)
  Receive Date: 20140506
  Receipt Date: 20140506
  Transmission Date: 20141212
  Serious: Yes (Hospitalization, Other)
  Sender: FDA-Public Use
  Company Number: DE-IAC JAPAN XML-DEU-2014-0014292

PATIENT
  Sex: Female

DRUGS (1)
  1. NORSPAN 5 UG/H [Suspect]
     Indication: SPONDYLOLISTHESIS
     Dosage: 5 MCG/HR, DAILY
     Route: 062
     Dates: start: 20140415, end: 201404

REACTIONS (7)
  - Pneumonia [Not Recovered/Not Resolved]
  - Lung adenocarcinoma recurrent [Not Recovered/Not Resolved]
  - Feeling abnormal [Not Recovered/Not Resolved]
  - Sleep disorder [Not Recovered/Not Resolved]
  - Decreased appetite [Not Recovered/Not Resolved]
  - Confusional state [Not Recovered/Not Resolved]
  - Fatigue [Not Recovered/Not Resolved]
